FAERS Safety Report 12257650 (Version 2)
Quarter: 2016Q2

REPORT INFORMATION
  Report Type: Spontaneous
  Country: US (occurrence: US)
  Receive Date: 20160412
  Receipt Date: 20160429
  Transmission Date: 20160815
  Serious: Yes (Death, Other)
  Sender: FDA-Public Use
  Company Number: US-MALLINCKRODT-T201601170

PATIENT
  Age: 72 Year
  Sex: Female

DRUGS (2)
  1. GABLOFEN [Suspect]
     Active Substance: BACLOFEN
     Dosage: 100 ?G PER DAY
     Route: 037
     Dates: start: 20160229
  2. GABLOFEN [Suspect]
     Active Substance: BACLOFEN
     Indication: MUSCLE SPASTICITY
     Dosage: 50 ?G PER DAY
     Route: 037
     Dates: start: 20160204, end: 20160228

REACTIONS (4)
  - Progressive multiple sclerosis [Fatal]
  - Haematemesis [Unknown]
  - Loss of consciousness [Unknown]
  - Cardiac arrest [Fatal]

NARRATIVE: CASE EVENT DATE: 20160327
